FAERS Safety Report 4436761-5 (Version None)
Quarter: 2004Q3

REPORT INFORMATION
  Report Type: 
  Country: None (occurrence: None)
  Receive Date: 20040728
  Receipt Date: 20030804
  Transmission Date: 20050211
  Serious: Yes (Hospitalization)
  Sender: FDA-Public Use
  Company Number: 201894

PATIENT
  Age: 76 Year
  Sex: Male
  Weight: 68 kg

DRUGS (5)
  1. RITUXAN [Suspect]
     Indication: LYMPHOMA
     Dosage: 660 MG, 1/WEEK, INTRAVENOUS
     Route: 042
     Dates: start: 20030630
  2. ALLOPURINOL [Concomitant]
  3. DEXAMETHASONE [Concomitant]
  4. TYLENOL [Concomitant]
  5. BENADRYL [Concomitant]

REACTIONS (3)
  - CHILLS [None]
  - HYPOTENSION [None]
  - NAUSEA [None]
